FAERS Safety Report 12041129 (Version 1)
Quarter: 2016Q1

REPORT INFORMATION
  Report Type: Spontaneous
  Country: US (occurrence: US)
  Receive Date: 20160208
  Receipt Date: 20160208
  Transmission Date: 20160526
  Serious: No
  Sender: FDA-Public Use
  Company Number: US-ABBVIE-15P-163-1330378-00

PATIENT
  Sex: Male

DRUGS (1)
  1. HUMIRA [Suspect]
     Active Substance: ADALIMUMAB
     Indication: COLITIS ULCERATIVE
     Route: 065

REACTIONS (7)
  - Immunosuppression [Unknown]
  - Laceration [Unknown]
  - Incontinence [Not Recovered/Not Resolved]
  - Impaired healing [Unknown]
  - Frequent bowel movements [Not Recovered/Not Resolved]
  - Stress at work [Recovering/Resolving]
  - Unevaluable event [Unknown]
